FAERS Safety Report 7944847-3 (Version None)
Quarter: 2011Q4

REPORT INFORMATION
  Report Type: 
  Country: None (occurrence: None)
  Receive Date: 20111129
  Receipt Date: 20101026
  Transmission Date: 20120403
  Serious: No
  Sender: FDA-Public Use
  Company Number: US-MYLANLABS-2010S1019875

PATIENT
  Age: 77 Year
  Sex: Male

DRUGS (2)
  1. AMLODIPINE BESYLATE [Suspect]
     Indication: BLOOD PRESSURE INCREASED
     Route: 048
     Dates: start: 20100901
  2. METOPROLOL TARTRATE [Concomitant]
     Indication: BLOOD PRESSURE INCREASED
     Route: 048

REACTIONS (1)
  - DRY EYE [None]
